FAERS Safety Report 19727808 (Version 1)
Quarter: 2021Q3

REPORT INFORMATION
  Report Type: Spontaneous
  Country: US (occurrence: US)
  Receive Date: 20210820
  Receipt Date: 20210820
  Transmission Date: 20211014
  Serious: Yes (Hospitalization)
  Sender: FDA-Public Use
  Company Number: None

PATIENT
  Age: 68 Year
  Sex: Male
  Weight: 100 kg

DRUGS (12)
  1. MEROPENEM. [Concomitant]
     Active Substance: MEROPENEM
  2. PANTOPRAZOLE [Concomitant]
     Active Substance: PANTOPRAZOLE
  3. DEXAMETHASONE. [Concomitant]
     Active Substance: DEXAMETHASONE
  4. REMDESIVIR. [Suspect]
     Active Substance: REMDESIVIR
     Indication: COVID-19
     Route: 042
     Dates: start: 20210814, end: 20210816
  5. CARVEDILOL. [Concomitant]
     Active Substance: CARVEDILOL
  6. OXYCHLOROSENE [Concomitant]
     Active Substance: OXYCHLOROSENE
  7. SODIUM ZIRCONIUM CYCLOSILICATE. [Concomitant]
     Active Substance: SODIUM ZIRCONIUM CYCLOSILICATE
  8. VANCOMYCIN [Concomitant]
     Active Substance: VANCOMYCIN
  9. HEPARIN [Concomitant]
     Active Substance: HEPARIN SODIUM
  10. ASPIRIN. [Concomitant]
     Active Substance: ASPIRIN
  11. DOXAZOSIN [Concomitant]
     Active Substance: DOXAZOSIN MESYLATE
  12. INSULIN GLARGINE/INSULIN LISPRO [Concomitant]

REACTIONS (3)
  - Bradycardia [None]
  - Rhythm idioventricular [None]
  - Atrial fibrillation [None]

NARRATIVE: CASE EVENT DATE: 20210816
